FAERS Safety Report 7864701-5 (Version None)
Quarter: 2011Q4

REPORT INFORMATION
  Report Type: 
  Country: None (occurrence: None)
  Receive Date: 20111028
  Receipt Date: 20111024
  Transmission Date: 20120403
  Serious: Yes (Other)
  Sender: FDA-Public Use
  Company Number: US-AMGEN-USASP2011054953

PATIENT
  Age: 43 Year
  Sex: Female

DRUGS (2)
  1. ENBREL [Suspect]
     Indication: RHEUMATOID ARTHRITIS
     Dosage: 50 MG, QWK
     Dates: start: 20101001
  2. ARAVA [Concomitant]
     Dosage: 1 MG, QD
     Dates: start: 20091001

REACTIONS (5)
  - INJECTION SITE PAIN [None]
  - RHEUMATOID NODULE [None]
  - INJECTION SITE HAEMORRHAGE [None]
  - HERPES ZOSTER OPHTHALMIC [None]
  - RHEUMATOID ARTHRITIS [None]
